FAERS Safety Report 19483084 (Version 2)
Quarter: 2021Q3

REPORT INFORMATION
  Report Type: Report from Study
  Country: US (occurrence: US)
  Receive Date: 20210701
  Receipt Date: 20210818
  Transmission Date: 20211014
  Serious: Yes (Hospitalization, Other)
  Sender: FDA-Public Use
  Company Number: US-VERTEX PHARMACEUTICALS-2021-009926

PATIENT
  Age: 62 Year
  Sex: Male

DRUGS (20)
  1. TRIKAFTA [Suspect]
     Active Substance: ELEXACAFTOR\IVACAFTOR\TEZACAFTOR
     Indication: CYSTIC FIBROSIS
     Dosage: (100 MG ELEXA/ 50 MG TEZA/ 75 MG IVA); (150MG IVA)  BID
     Route: 048
     Dates: start: 20201022, end: 20210604
  2. VITAMIN D [ERGOCALCIFEROL] [Concomitant]
     Active Substance: ERGOCALCIFEROL
  3. ALBUTEROL [SALBUTAMOL] [Concomitant]
     Active Substance: ALBUTEROL
  4. FINASTERIDE. [Concomitant]
     Active Substance: FINASTERIDE
  5. TRAMADOL. [Concomitant]
     Active Substance: TRAMADOL
  6. PULMOZYME [Concomitant]
     Active Substance: DORNASE ALFA
  7. ALLEGRA [Concomitant]
     Active Substance: FEXOFENADINE HYDROCHLORIDE
  8. CALCIUM+D [Concomitant]
     Active Substance: CALCIUM\VITAMIN D
  9. VITAMIN C [Concomitant]
     Active Substance: ASCORBIC ACID
  10. FLONASE [Concomitant]
     Active Substance: FLUTICASONE PROPIONATE
  11. LOSARTAN. [Concomitant]
     Active Substance: LOSARTAN
  12. SYMBICORT [Concomitant]
     Active Substance: BUDESONIDE\FORMOTEROL FUMARATE DIHYDRATE
  13. TAMSULOSIN [TAMSULOSIN HYDROCHLORIDE] [Concomitant]
     Active Substance: TAMSULOSIN HYDROCHLORIDE
  14. FERROUS SULFATE. [Concomitant]
     Active Substance: FERROUS SULFATE
  15. AZITHROMYCIN ANHYDROUS. [Concomitant]
     Active Substance: AZITHROMYCIN ANHYDROUS
  16. MONTELUKAST [Concomitant]
     Active Substance: MONTELUKAST SODIUM
  17. TOBRAMYCIN. [Concomitant]
     Active Substance: TOBRAMYCIN
  18. MELATONIN [Concomitant]
     Active Substance: MELATONIN
  19. LORAZEPAM. [Concomitant]
     Active Substance: LORAZEPAM
  20. GABAPENTIN. [Concomitant]
     Active Substance: GABAPENTIN

REACTIONS (2)
  - Drug ineffective [Unknown]
  - Infective pulmonary exacerbation of cystic fibrosis [Recovered/Resolved]

NARRATIVE: CASE EVENT DATE: 20210604
